FAERS Safety Report 24157449 (Version 1)
Quarter: 2024Q3

REPORT INFORMATION
  Report Type: Spontaneous
  Country: GB (occurrence: GB)
  Receive Date: 20240731
  Receipt Date: 20240731
  Transmission Date: 20241017
  Serious: Yes (Other)
  Sender: INSUD PHARMA
  Company Number: None

PATIENT
  Age: 56 Year

DRUGS (9)
  1. OMEPRAZOLE [Suspect]
     Active Substance: OMEPRAZOLE
     Indication: Product used for unknown indication
     Dosage: 20 MILLIGRAM, QD
  2. ACETAMINOPHEN [Concomitant]
     Active Substance: ACETAMINOPHEN
     Dosage: 1000 MILLIGRAM
  3. APIXABAN [Concomitant]
     Active Substance: APIXABAN
     Dosage: 5 MILLIGRAM, Q12H
  4. DOCUSATE [Concomitant]
     Active Substance: DOCUSATE
     Dosage: 200 MILLIGRAM, Q12H
  5. LACTULOSE [Concomitant]
     Active Substance: LACTULOSE
     Dosage: 3.1-3.7 G / 5 ML
  6. POLYETHYLENE GLYCOLS [Concomitant]
     Active Substance: POLYETHYLENE GLYCOLS
     Dosage: SACHETS NPF SUGAR FREE  TAKE THE CONTENTS OF 4 SACHETS DISSOLVED IN WATER ON FIRST DAY, INCREASE IN
  7. ENSURE [Concomitant]
     Active Substance: AMINO ACIDS\DEXTROSE\ELECTROLYTES NOS\SOYBEAN OIL\VITAMINS
     Dosage: MILKSHAKE STYLE LIQUID STRAWBERRY ONE BOTTLE TWICE A DAY DAILY
  8. DENOSUMAB [Concomitant]
     Active Substance: DENOSUMAB
     Dosage: 120 MILLIGRAM, MONTHLY
  9. OSIMERTINIB [Concomitant]
     Active Substance: OSIMERTINIB
     Dosage: TOLD TO STOP TAKING DUE TO BEING UNWELL

REACTIONS (2)
  - Muscle spasms [Unknown]
  - Abdominal pain upper [Unknown]
